FAERS Safety Report 18104187 (Version 1)
Quarter: 2020Q3

REPORT INFORMATION
  Report Type: Spontaneous
  Country: ES (occurrence: ES)
  Receive Date: 20200803
  Receipt Date: 20200803
  Transmission Date: 20201103
  Serious: Yes (Hospitalization)
  Sender: FDA-Public Use
  Company Number: ES-TEVA-2020-ES-1808105

PATIENT
  Age: 77 Year
  Sex: Female

DRUGS (9)
  1. OMEPRAZOL 20 MG CAPSULA [Concomitant]
  2. MIRABEGRON (8623A) [Concomitant]
     Active Substance: MIRABEGRON
  3. ZOLPIDEM 10 MG COMPRIMIDO [Suspect]
     Active Substance: ZOLPIDEM TARTRATE
     Route: 048
     Dates: start: 20200414
  4. LOSARTAN AND HYDROCHLOROTHIAZIDE [Suspect]
     Active Substance: HYDROCHLOROTHIAZIDE\LOSARTAN POTASSIUM
     Indication: DYSPNOEA
     Route: 048
     Dates: start: 202007
  5. DEXAMETASONA 4 MG COMPRIMIDO [Concomitant]
     Active Substance: DEXAMETHASONE
  6. COLECALCIFEROL 25.000 UI SOLUCI N/SUSPENSI N ORAL [Concomitant]
  7. SIMVASTATINA 20 MG COMPRIMIDO [Concomitant]
     Active Substance: SIMVASTATIN
  8. ACETILSALICILICO ACIDO (176A) [Concomitant]
     Active Substance: ASPIRIN
  9. PARACETAMOL 1.000 MG COMPRIMIDO [Concomitant]

REACTIONS (2)
  - Syncope [Recovered/Resolved]
  - Hypotension [Recovered/Resolved]

NARRATIVE: CASE EVENT DATE: 20200713
